FAERS Safety Report 5225538-9 (Version None)
Quarter: 2007Q1

REPORT INFORMATION
  Report Type: 
  Country: None (occurrence: None)
  Receive Date: 20070131
  Receipt Date: 20070122
  Transmission Date: 20070707
  Serious: Yes (Other)
  Sender: FDA-Public Use
  Company Number: US-PFIZER INC-2007006009

PATIENT
  Sex: Female
  Weight: 69.9 kg

DRUGS (2)
  1. XALATAN [Suspect]
     Route: 047
  2. ACETYLSALICYLIC ACID [Concomitant]

REACTIONS (3)
  - MOVEMENT DISORDER [None]
  - MUSCULOSKELETAL STIFFNESS [None]
  - PRURITUS [None]
